FAERS Safety Report 4480589-7 (Version None)
Quarter: 2004Q4

REPORT INFORMATION
  Report Type: 
  Country: None (occurrence: None)
  Receive Date: 20041019
  Receipt Date: 20041006
  Transmission Date: 20050328
  Serious: No
  Sender: FDA-Public Use
  Company Number: 2004234249GB

PATIENT
  Age: 51 Year
  Sex: Male
  Weight: 91 kg

DRUGS (11)
  1. DEPO-MEDROL (METHYLPREDNISOLONE) SUSPENSION, STERILE [Suspect]
     Indication: PLANTAR FASCIITIS
     Dosage: 80 MG, QD
     Dates: start: 20040617, end: 20040617
  2. LIGNOCAINE INJECTION (LIDOCAINE)SOLUTION, STERILE [Suspect]
     Indication: PLANTAR FASCIITIS
     Dates: start: 20040617, end: 20040617
  3. DIHYDROCODONE (DIHYDROCODONE) [Concomitant]
  4. OMEPRAZOLE [Concomitant]
  5. CARBAMAZEPINE [Concomitant]
  6. BUMETANIDE [Concomitant]
  7. PERINDOPRIL (PERINDOPRIL) [Concomitant]
  8. SOTALOL HCL [Concomitant]
  9. PANCREX [Concomitant]
  10. GAVISCON [Concomitant]
  11. TRAMADOL HCL [Concomitant]

REACTIONS (1)
  - ECZEMA INFECTED [None]
